FAERS Safety Report 15110039 (Version 2)
Quarter: 2020Q2

REPORT INFORMATION
  Report Type: Spontaneous
  Country: US (occurrence: US)
  Receive Date: 20180705
  Receipt Date: 20200421
  Transmission Date: 20200713
  Serious: Yes (Hospitalization, Other)
  Sender: FDA-Public Use
  Company Number: US-GLENMARK PHARMACEUTICALS-2018GMK036315

PATIENT
  Age: 52 Year
  Sex: Female

DRUGS (6)
  1. MEROPENEM. [Concomitant]
     Active Substance: MEROPENEM
     Indication: ESCHERICHIA INFECTION
     Dosage: 1 G, TID
     Route: 042
  2. MEROPENEM. [Concomitant]
     Active Substance: MEROPENEM
     Indication: ENTEROCOCCAL INFECTION
  3. LINEZOLID. [Suspect]
     Active Substance: LINEZOLID
     Indication: ENTEROBACTER INFECTION
     Dosage: 600 MG, BID
     Route: 042
  4. ERTAPENEM. [Concomitant]
     Active Substance: ERTAPENEM SODIUM
     Indication: ESCHERICHIA INFECTION
     Dosage: 1 G, BID
     Route: 042
  5. LINEZOLID. [Suspect]
     Active Substance: LINEZOLID
     Indication: ENTEROCOCCAL INFECTION
     Dosage: UNK, (PLANNED COURSE OF 8 WEEKS)
     Route: 048
  6. ERTAPENEM. [Concomitant]
     Active Substance: ERTAPENEM SODIUM
     Indication: ENTEROBACTER INFECTION

REACTIONS (4)
  - Metabolic acidosis [Recovering/Resolving]
  - Pancreatitis [Unknown]
  - Toxicity to various agents [Unknown]
  - Hypoglycaemia [Recovered/Resolved]
